FAERS Safety Report 6495795-X (Version None)
Quarter: 2009Q4

REPORT INFORMATION
  Report Type: 
  Country: None (occurrence: None)
  Receive Date: 20091214
  Receipt Date: 20091015
  Transmission Date: 20100525
  Serious: No
  Sender: FDA-Public Use
  Company Number: US-BRISTOL-MYERS SQUIBB COMPANY-14740310

PATIENT
  Age: 64 Year
  Sex: Female

DRUGS (12)
  1. ABILIFY [Suspect]
     Indication: MAJOR DEPRESSION
     Route: 048
     Dates: start: 20070404
  2. ABILIFY [Suspect]
     Indication: BIPOLAR DISORDER
     Route: 048
     Dates: start: 20070404
  3. TRAMADOL HCL [Concomitant]
  4. SIMVASTATIN [Concomitant]
  5. COZAAR [Concomitant]
  6. AMBIEN [Concomitant]
  7. LEVOTHYROXINE SODIUM [Concomitant]
  8. PROZAC [Concomitant]
  9. LORAZEPAM [Concomitant]
  10. TOPAMAX [Concomitant]
  11. PLAVIX [Concomitant]
  12. PREVACID [Concomitant]

REACTIONS (1)
  - HYPERGLYCAEMIA [None]
